FAERS Safety Report 6215749-8 (Version None)
Quarter: 2009Q2

REPORT INFORMATION
  Report Type: 
  Country: None (occurrence: None)
  Receive Date: 20090605
  Receipt Date: 20090527
  Transmission Date: 20091009
  Serious: Yes (Hospitalization)
  Sender: FDA-Public Use
  Company Number: ES-ABBOTT-09P-144-0576460-00

PATIENT
  Age: 64 Year
  Sex: Female

DRUGS (7)
  1. VALPROATE SODIUM [Suspect]
     Indication: PSYCHOTIC DISORDER
  2. VALPROATE SODIUM [Suspect]
  3. CLOZAPINE [Suspect]
     Indication: PSYCHOTIC DISORDER
  4. HALOPERIDOL [Suspect]
     Indication: PSYCHOTIC DISORDER
  5. OLANZAPINE [Suspect]
     Indication: PSYCHOTIC DISORDER
  6. BIPERIDEN HYDROCHLORIDE TAB [Concomitant]
     Indication: SEDATIVE THERAPY
  7. LEVOMEPROMAZINE [Concomitant]
     Indication: SEDATIVE THERAPY

REACTIONS (1)
  - PLEURAL EFFUSION [None]
